FAERS Safety Report 4996253-1 (Version None)
Quarter: 2006Q2

REPORT INFORMATION
  Report Type: 
  Country: None (occurrence: None)
  Receive Date: 20060509
  Receipt Date: 20060428
  Transmission Date: 20061013
  Serious: Yes (Death, Other)
  Sender: FDA-Public Use
  Company Number: PHBS2006AR06765

PATIENT
  Age: 75 Year
  Sex: Female

DRUGS (2)
  1. PAMIDRONATE DISODIUM [Suspect]
     Indication: METASTASES TO BONE
     Dosage: 90 MG, QMO
     Route: 042
     Dates: start: 20000101
  2. MEPREDNISONE [Concomitant]
     Dosage: 8 MG/D
     Route: 065
     Dates: start: 20020101

REACTIONS (9)
  - BONE DISORDER [None]
  - DEATH [None]
  - OSTEOMYELITIS CHRONIC [None]
  - PRIMARY SEQUESTRUM [None]
  - SEQUESTRECTOMY [None]
  - TOOTH EXTRACTION [None]
  - TOOTH INFECTION [None]
  - TOOTH LOSS [None]
  - WOUND DEBRIDEMENT [None]
